FAERS Safety Report 7955334 (Version 3)
Quarter: 2014Q2

REPORT INFORMATION
  Report Type: Spontaneous
  Country: None (occurrence: None)
  Receive Date: 20110428
  Receipt Date: 20140415
  Transmission Date: 20141212
  Serious: Yes (Other)
  Sender: FDA-Public Use
  Company Number: AUR-APL-2011-01380

PATIENT
  Age: 77 Year
  Sex: Male

DRUGS (10)
  1. CARVEDILOL (CARVEDILOL) [Suspect]
     Indication: PRODUCT USED FOR UNKNOWN INDICATION
  2. LISINOPRIL [Suspect]
     Indication: PRODUCT USED FOR UNKNOWN INDICATION
  3. POTASSIUM (POTASSIUM) [Suspect]
     Indication: PRODUCT USED FOR UNKNOWN INDICATION
  4. AMLODIPINE [Concomitant]
  5. INDAPAMIDE [Concomitant]
  6. FUROSEMIDE [Concomitant]
  7. ALLOPURINOL [Concomitant]
  8. ACETYLSALICYLIC ACID [Concomitant]
  9. SPIRONOLACTONE [Concomitant]
  10. ATORVASTATIN [Concomitant]

REACTIONS (8)
  - Drug interaction [None]
  - Hyperkalaemia [None]
  - Hypotension [None]
  - Dysphonia [None]
  - Asthenia [None]
  - Malaise [None]
  - Dyspnoea [None]
  - Peripheral swelling [None]
